FAERS Safety Report 5696594-9 (Version None)
Quarter: 2008Q2

REPORT INFORMATION
  Report Type: 
  Country: None (occurrence: None)
  Receive Date: 20080401
  Receipt Date: 20070514
  Transmission Date: 20081010
  Serious: Yes (Other)
  Sender: FDA-Public Use
  Company Number: 156431USA

PATIENT
  Sex: Male

DRUGS (4)
  1. ETODOLAC [Suspect]
     Dosage: (400 MG),ORAL
     Route: 048
     Dates: start: 20050501
  2. NAPROXEN SODIUM [Suspect]
     Dosage: ORAL
     Route: 048
  3. CELECOXIB [Suspect]
     Dosage: ORAL
     Route: 048
  4. EXCEDRIN (MIGRAINE) [Suspect]
     Dosage: ORAL
     Route: 048

REACTIONS (4)
  - ABDOMINAL PAIN UPPER [None]
  - GASTRIC ULCER [None]
  - HELICOBACTER INFECTION [None]
  - STOMACH DISCOMFORT [None]
